FAERS Safety Report 9360699 (Version 1)
Quarter: 2013Q2

REPORT INFORMATION
  Report Type: Spontaneous
  Country: GB (occurrence: GB)
  Receive Date: 20130621
  Receipt Date: 20130621
  Transmission Date: 20140414
  Serious: Yes (Other)
  Sender: FDA-Public Use
  Company Number: GB-ACCORD-018075

PATIENT
  Age: 26 Year
  Sex: Female

DRUGS (5)
  1. TRAMADOL [Suspect]
     Indication: PAIN
     Route: 065
  2. NAPROXEN [Suspect]
     Indication: PAIN
     Route: 065
  3. LEFLUNOMIDE [Suspect]
     Indication: PAIN
     Route: 065
  4. CO-CODAMOL [Suspect]
     Indication: PAIN
     Route: 065
  5. DICLOFENAC [Suspect]
     Indication: PAIN
     Route: 065

REACTIONS (2)
  - Suicidal ideation [Unknown]
  - Drug ineffective [Unknown]
